FAERS Safety Report 6936780-0 (Version None)
Quarter: 2010Q3

REPORT INFORMATION
  Report Type: 
  Country: None (occurrence: None)
  Receive Date: 20100823
  Receipt Date: 20100811
  Transmission Date: 20110219
  Serious: Yes (Hospitalization, Other)
  Sender: FDA-Public Use
  Company Number: IN-MERCK-1008USA02950

PATIENT
  Sex: Female

DRUGS (1)
  1. JANUMET [Suspect]
     Route: 048

REACTIONS (4)
  - EPILEPSY [None]
  - HYPOGLYCAEMIA [None]
  - OVERDOSE [None]
  - SUICIDE ATTEMPT [None]
